FAERS Safety Report 9224484 (Version 1)
Quarter: 2013Q2

REPORT INFORMATION
  Report Type: Spontaneous
  Country: US (occurrence: None)
  Receive Date: 20130409
  Receipt Date: 20130409
  Transmission Date: 20140414
  Serious: Yes (Congenital Anomaly, Other)
  Sender: FDA-Public Use
  Company Number: None

PATIENT
  Age: 29 Year
  Sex: Female

DRUGS (1)
  1. BUPROPRION XL [Suspect]
     Indication: DEPRESSION
     Route: 048
     Dates: start: 20120104, end: 20130710

REACTIONS (3)
  - Testicular torsion [None]
  - Maternal drugs affecting foetus [None]
  - Cryptorchism [None]
